FAERS Safety Report 6725953-8 (Version None)
Quarter: 2010Q2

REPORT INFORMATION
  Report Type: 
  Country: None (occurrence: None)
  Receive Date: 20100512
  Receipt Date: 20100503
  Transmission Date: 20101027
  Serious: Yes (Other)
  Sender: FDA-Public Use
  Company Number: 1000013758

PATIENT
  Age: 80 Year
  Sex: Male

DRUGS (2)
  1. ESCITALOPRAM [Suspect]
     Indication: DEPRESSION
     Dosage: 5 MG (5 MG,1 IN 1 D),ORAL
     Route: 048
  2. ESCITALOPRAM [Suspect]
     Indication: DEPRESSION
     Dosage: 10 MG (10 MG,1 IN 1 D),ORAL ; 5 MG (5 MG,1 IN 1 D),ORAL
     Route: 048

REACTIONS (3)
  - AGITATION [None]
  - CONVERSION DISORDER [None]
  - INSOMNIA [None]
